FAERS Safety Report 8304760-9 (Version None)
Quarter: 2012Q2

REPORT INFORMATION
  Report Type: 
  Country: None (occurrence: None)
  Receive Date: 20120423
  Receipt Date: 20120418
  Transmission Date: 20120825
  Serious: Yes (Life-Threatening)
  Sender: FDA-Public Use
  Company Number: DE-ASTRAZENECA-2012SE25331

PATIENT
  Age: 41 Year
  Sex: Female

DRUGS (3)
  1. SEROQUEL [Suspect]
     Indication: SCHIZOPHRENIA
     Route: 048
     Dates: start: 20100628, end: 20110323
  2. RISPERDAL [Suspect]
     Dosage: 60 MG ABOUT 30 TABLETS WITH 2 MG
     Route: 048
     Dates: start: 20110322, end: 20110322
  3. SEROQUEL [Suspect]
     Dosage: 16000 MG, ABOUT 80 TABLETS WITH 200 MG
     Route: 048
     Dates: start: 20110322, end: 20110322

REACTIONS (3)
  - SUICIDE ATTEMPT [None]
  - OVERDOSE [None]
  - MATERNAL EXPOSURE DURING PREGNANCY [None]
